FAERS Safety Report 19025022 (Version 1)
Quarter: 2021Q1

REPORT INFORMATION
  Report Type: Spontaneous
  Country: DE (occurrence: DE)
  Receive Date: 20210318
  Receipt Date: 20210318
  Transmission Date: 20210420
  Serious: Yes (Hospitalization)
  Sender: FDA-Public Use
  Company Number: NVSC2021DE053584

PATIENT
  Age: 3 Year
  Sex: Female
  Weight: 11 kg

DRUGS (5)
  1. NEXIUM [Concomitant]
     Active Substance: ESOMEPRAZOLE MAGNESIUM
     Indication: PROPHYLAXIS
     Dosage: 10 MG, QD (DAILY DOSE: 10 MG MILLGRAM(S) EVERY DAYS)
     Route: 048
  2. FERRUM HAUSMANN [Concomitant]
     Indication: IRON DEFICIENCY ANAEMIA
     Dosage: UNK (8?0?7 TR)
     Route: 048
  3. CERTICAN [Suspect]
     Active Substance: EVEROLIMUS
     Indication: IMMUNOSUPPRESSION
     Dosage: 1.5 MG, QD (DAILY DOSE: 1.5 MG MILLGRAM(S) EVERY DAYS 2 SEPARATED DOSES)
     Route: 048
     Dates: start: 20180724
  4. MODIGRAF [Suspect]
     Active Substance: TACROLIMUS
     Indication: IMMUNOSUPPRESSION
     Dosage: UNK (1,3?0?1,2)
     Route: 048
     Dates: start: 20180724
  5. VIGANTOL [Concomitant]
     Indication: PRODUCT SUBSTITUTION
     Dosage: 500 IU, QD (DAILY DOSE: 500 IU INTERNATIONAL UNIT(S) EVERY DAYS)
     Route: 048
     Dates: start: 201711

REACTIONS (7)
  - Hypotonia [Not Recovered/Not Resolved]
  - Epstein-Barr virus infection reactivation [Not Recovered/Not Resolved]
  - Rash macular [Not Recovered/Not Resolved]
  - Seroconversion test positive [Not Recovered/Not Resolved]
  - Pyrexia [Not Recovered/Not Resolved]
  - Abdominal pain [Not Recovered/Not Resolved]
  - Tonsillitis streptococcal [Not Recovered/Not Resolved]

NARRATIVE: CASE EVENT DATE: 20200608
